FAERS Safety Report 26138129 (Version 1)
Quarter: 2025Q4

REPORT INFORMATION
  Report Type: Report from Study
  Country: CA (occurrence: CA)
  Receive Date: 20251210
  Receipt Date: 20251210
  Transmission Date: 20260119
  Serious: Yes (Hospitalization)
  Sender: CSL BEHRING
  Company Number: CA-Vifor (International) Inc.-VIT-2024-00369

PATIENT
  Age: 73 Year
  Sex: Male

DRUGS (1)
  1. VELTASSA [Suspect]
     Active Substance: PATIROMER
     Indication: Hyperkalaemia
     Dosage: 8.4 GRAMS (1 SACHET) DAILY ON NON HD DAYS (TUES,THURS,SAT AND SUN)
     Route: 048
     Dates: start: 20230609

REACTIONS (4)
  - Limb discomfort [Unknown]
  - Haematochezia [Unknown]
  - Off label use [Unknown]
  - Product use issue [Unknown]

NARRATIVE: CASE EVENT DATE: 20230601
